FAERS Safety Report 19075896 (Version 3)
Quarter: 2023Q2

REPORT INFORMATION
  Report Type: Spontaneous
  Country: US (occurrence: US)
  Receive Date: 20210330
  Receipt Date: 20230411
  Transmission Date: 20230721
  Serious: Yes (Hospitalization, Other)
  Sender: FDA-Public Use
  Company Number: US-GILEAD-2021-0523094

PATIENT
  Age: 52 Year
  Sex: Female
  Weight: 83.447 kg

DRUGS (67)
  1. TRUVADA [Suspect]
     Active Substance: EMTRICITABINE\TENOFOVIR DISOPROXIL FUMARATE
     Indication: HIV infection
     Dosage: UNK
     Route: 048
     Dates: start: 2015
  2. TRUVADA [Suspect]
     Active Substance: EMTRICITABINE\TENOFOVIR DISOPROXIL FUMARATE
     Dosage: UNK
     Route: 048
     Dates: start: 20070312, end: 201909
  3. TRUVADA [Suspect]
     Active Substance: EMTRICITABINE\TENOFOVIR DISOPROXIL FUMARATE
     Dosage: UNK
     Route: 048
     Dates: start: 201609, end: 202101
  4. BIKTARVY [Concomitant]
     Active Substance: BICTEGRAVIR SODIUM\EMTRICITABINE\TENOFOVIR ALAFENAMIDE FUMARATE
  5. GENVOYA [Concomitant]
     Active Substance: COBICISTAT\ELVITEGRAVIR\EMTRICITABINE\TENOFOVIR ALAFENAMIDE FUMARATE
  6. COMBIVIR [Concomitant]
     Active Substance: LAMIVUDINE\ZIDOVUDINE
  7. SUSTIVA [Concomitant]
     Active Substance: EFAVIRENZ
  8. TRIUMEQ [Concomitant]
     Active Substance: ABACAVIR SULFATE\DOLUTEGRAVIR SODIUM\LAMIVUDINE
  9. ACETAMINOPHEN [Concomitant]
     Active Substance: ACETAMINOPHEN
  10. ALBUTEROL SULFATE [Concomitant]
     Active Substance: ALBUTEROL SULFATE
  11. AMLODIPINE [Concomitant]
     Active Substance: AMLODIPINE BESYLATE
  12. AMMONIUM LACTATE [Concomitant]
     Active Substance: AMMONIUM LACTATE
  13. AMOXICILLIN\CLAVULANIC ACID [Concomitant]
     Active Substance: AMOXICILLIN\CLAVULANIC ACID
  14. AMOXICILLIN [Concomitant]
     Active Substance: AMOXICILLIN
  15. ATENOLOL [Concomitant]
     Active Substance: ATENOLOL
  16. AZITHROMYCIN [Concomitant]
     Active Substance: AZITHROMYCIN
  17. CEPHALEXIN [Concomitant]
     Active Substance: CEPHALEXIN
  18. CITALOPRAM [Concomitant]
     Active Substance: CITALOPRAM HYDROBROMIDE
  19. COLCHICINE [Concomitant]
     Active Substance: COLCHICINE
  20. COMBIGAN [Concomitant]
     Active Substance: BRIMONIDINE TARTRATE\TIMOLOL MALEATE
  21. CYCLOBENZAPRINE [Concomitant]
     Active Substance: CYCLOBENZAPRINE
  22. DORZOLAMIDE [Concomitant]
     Active Substance: DORZOLAMIDE
  23. EFAVIRENZ [Concomitant]
     Active Substance: EFAVIRENZ
  24. FLUTICASONE [Concomitant]
     Active Substance: FLUTICASONE
  25. GABAPENTIN [Concomitant]
     Active Substance: GABAPENTIN
  26. HUMALOG [Concomitant]
     Active Substance: INSULIN LISPRO
  27. HUMULIN R [Concomitant]
     Active Substance: INSULIN HUMAN
  28. HYDROCHLOROTHIAZIDE [Concomitant]
     Active Substance: HYDROCHLOROTHIAZIDE
  29. HYDROCODONE [Concomitant]
     Active Substance: HYDROCODONE
  30. IBUPROFEN [Concomitant]
     Active Substance: IBUPROFEN
  31. LAMIVUDINE [Concomitant]
     Active Substance: LAMIVUDINE
  32. ZIDOVUDINE [Concomitant]
     Active Substance: ZIDOVUDINE
  33. LATANOPROST [Concomitant]
     Active Substance: LATANOPROST
  34. LEVOFLOXACIN [Concomitant]
     Active Substance: LEVOFLOXACIN
  35. LISINOPRIL [Concomitant]
     Active Substance: LISINOPRIL
  36. LORATADINE [Concomitant]
     Active Substance: LORATADINE
  37. LUMIGAN [Concomitant]
     Active Substance: BIMATOPROST
  38. LYRICA [Concomitant]
     Active Substance: PREGABALIN
  39. METFORMIN [Concomitant]
     Active Substance: METFORMIN HYDROCHLORIDE
  40. METOCLOPRAMIDE [Concomitant]
     Active Substance: METOCLOPRAMIDE
  41. NAFTIN [Concomitant]
     Active Substance: NAFTIFINE HYDROCHLORIDE
  42. NAPROXEN [Concomitant]
     Active Substance: NAPROXEN
  43. NASONEX [Concomitant]
     Active Substance: MOMETASONE FUROATE
  44. NOVOLIN R [Concomitant]
     Active Substance: INSULIN HUMAN
  45. NOVOLOG [Concomitant]
     Active Substance: INSULIN ASPART
  46. OMEPRAZOLE [Concomitant]
     Active Substance: OMEPRAZOLE
  47. ONDANSETRON [Concomitant]
     Active Substance: ONDANSETRON
  48. OXYCODONE [Concomitant]
     Active Substance: OXYCODONE
  49. PANTOPRAZOLE [Concomitant]
     Active Substance: PANTOPRAZOLE
  50. PEG 3350 [Concomitant]
     Active Substance: POLYETHYLENE GLYCOL 3350
  51. PENICILLIN [Concomitant]
     Active Substance: PENICILLIN
  52. POLYMYXIN [Concomitant]
     Active Substance: POLYMYXIN
  53. PREDNISONE [Concomitant]
     Active Substance: PREDNISONE
  54. PREMARIN [Concomitant]
     Active Substance: ESTROGENS, CONJUGATED
  55. PROMETHAZINE [Concomitant]
     Active Substance: PROMETHAZINE HYDROCHLORIDE
  56. PROVENTIL [Concomitant]
     Active Substance: ALBUTEROL
  57. RANITIDINE [Concomitant]
     Active Substance: RANITIDINE
  58. SIMVASTATIN [Concomitant]
     Active Substance: SIMVASTATIN
  59. SUCRALFATE [Concomitant]
     Active Substance: SUCRALFATE
  60. SULFAMETHOXAZOLE\TRIMETHOPRIM [Concomitant]
     Active Substance: SULFAMETHOXAZOLE\TRIMETHOPRIM
  61. TRAMADOL [Concomitant]
     Active Substance: TRAMADOL
  62. TRIAMTERENE [Concomitant]
     Active Substance: TRIAMTERENE
  63. VITAMIN D2 [Concomitant]
     Active Substance: ERGOCALCIFEROL
  64. CALCITRIOL [Concomitant]
     Active Substance: CALCITRIOL
  65. HEPARIN [Concomitant]
     Active Substance: HEPARIN SODIUM
  66. RENVELA [Concomitant]
     Active Substance: SEVELAMER CARBONATE
  67. ALLOPURINOL [Concomitant]
     Active Substance: ALLOPURINOL

REACTIONS (13)
  - End stage renal disease [Not Recovered/Not Resolved]
  - Acute kidney injury [Recovered/Resolved]
  - Renal failure [Recovered/Resolved]
  - Renal injury [Unknown]
  - Chronic kidney disease [Not Recovered/Not Resolved]
  - Chronic kidney disease-mineral and bone disorder [Not Recovered/Not Resolved]
  - Emotional distress [Not Recovered/Not Resolved]
  - Anhedonia [Not Recovered/Not Resolved]
  - Anxiety [Not Recovered/Not Resolved]
  - Pain [Not Recovered/Not Resolved]
  - Quality of life decreased [Not Recovered/Not Resolved]
  - Dyspnoea [Not Recovered/Not Resolved]
  - Gout [Not Recovered/Not Resolved]

NARRATIVE: CASE EVENT DATE: 20161001
